FAERS Safety Report 7793348-4 (Version None)
Quarter: 2011Q4

REPORT INFORMATION
  Report Type: 
  Country: None (occurrence: None)
  Receive Date: 20111003
  Receipt Date: 20110705
  Transmission Date: 20120403
  Serious: No
  Sender: FDA-Public Use
  Company Number: US-BAYER-2011-058253

PATIENT
  Sex: Male

DRUGS (1)
  1. AVELOX [Suspect]

REACTIONS (5)
  - INSOMNIA [None]
  - FATIGUE [None]
  - NERVOUSNESS [None]
  - PARAESTHESIA [None]
  - RASH [None]
